FAERS Safety Report 15429139 (Version 1)
Quarter: 2018Q3

REPORT INFORMATION
  Report Type: Spontaneous
  Country: US (occurrence: US)
  Receive Date: 20180920
  Receipt Date: 20180920
  Transmission Date: 20181010
  Serious: No
  Sender: FDA-Public Use
  Company Number: None

PATIENT
  Age: 26 Year
  Sex: Female
  Weight: 112.5 kg

DRUGS (1)
  1. CONTRAVE [Suspect]
     Active Substance: BUPROPION HYDROCHLORIDE\NALTREXONE HYDROCHLORIDE
     Indication: WEIGHT DECREASED
     Dates: start: 20180919, end: 20180920

REACTIONS (10)
  - Hot flush [None]
  - Cough [None]
  - Abdominal pain upper [None]
  - Dry mouth [None]
  - Dizziness [None]
  - Diarrhoea [None]
  - Disturbance in attention [None]
  - Restless legs syndrome [None]
  - Headache [None]
  - Nausea [None]

NARRATIVE: CASE EVENT DATE: 20180920
